FAERS Safety Report 8774713 (Version 7)
Quarter: 2013Q3

REPORT INFORMATION
  Report Type: Report from Study
  Country: JP (occurrence: JP)
  Receive Date: 20120910
  Receipt Date: 20130924
  Transmission Date: 20140515
  Serious: Yes (Hospitalization, Other)
  Sender: FDA-Public Use
  Company Number: JP-VERTEX PHARMACEUTICAL INC.-2012-020729

PATIENT
  Age: 57 Year
  Sex: Female

DRUGS (10)
  1. VX-950 (TELAPREVIR) [Suspect]
     Indication: CHRONIC HEPATITIS C
     Dosage: 1500 MG, QD
     Route: 048
     Dates: start: 20120720, end: 20120814
  2. VX-950 (TELAPREVIR) [Suspect]
     Dosage: 750 MG, QD
     Route: 048
     Dates: start: 20120824, end: 20120830
  3. VX-950 (TELAPREVIR) [Suspect]
     Dosage: 1000 MG, QD
     Route: 048
     Dates: start: 20120831, end: 20121112
  4. REBETOL [Suspect]
     Indication: CHRONIC HEPATITIS C
     Dosage: 600 MG, QD
     Route: 048
     Dates: start: 20120720, end: 20120814
  5. REBETOL [Suspect]
     Dosage: 600 MG, QD
     Route: 048
     Dates: start: 20120817, end: 20121122
  6. PEGINTRON [Suspect]
     Indication: CHRONIC HEPATITIS C
     Dosage: 1.5 ?G/KG, QW
     Route: 058
     Dates: start: 20120720, end: 20121116
  7. MUCOSTA [Concomitant]
     Dosage: 100 MG/DAY, PRN
     Route: 048
     Dates: start: 20120720, end: 20121122
  8. GAMOFA D [Concomitant]
     Dosage: 40 MG, QD
     Route: 048
     Dates: start: 20120720, end: 20121122
  9. LOXONIN [Concomitant]
     Dosage: 60 MG/DAY, PRN
     Route: 048
     Dates: start: 20120720, end: 20121122
  10. CELESTAMINE [Concomitant]
     Dosage: 3 DF, QD
     Route: 048
     Dates: end: 20121122

REACTIONS (4)
  - Laryngeal pain [Recovered/Resolved]
  - Toxic skin eruption [Recovered/Resolved]
  - Proctalgia [Recovered/Resolved]
  - Rash [Recovered/Resolved]
